FAERS Safety Report 20679903 (Version 3)
Quarter: 2022Q3

REPORT INFORMATION
  Report Type: Spontaneous
  Country: IN (occurrence: IN)
  Receive Date: 20220406
  Receipt Date: 20220721
  Transmission Date: 20221027
  Serious: Yes (Other)
  Sender: FDA-Public Use
  Company Number: IN-PFIZER INC-2020356805

PATIENT
  Age: 61 Year
  Sex: Female

DRUGS (19)
  1. PALBOCICLIB [Suspect]
     Active Substance: PALBOCICLIB
     Indication: Breast cancer metastatic
     Dosage: 125 MG, 1X/DAY
     Route: 048
     Dates: start: 20190814, end: 2019
  2. PALBOCICLIB [Suspect]
     Active Substance: PALBOCICLIB
     Dosage: 125 MG, CYCLIC (ONCE DAILY, 21 DAYS ON, 7 DAYS OFF)
     Route: 048
     Dates: start: 20191003
  3. PALBOCICLIB [Suspect]
     Active Substance: PALBOCICLIB
     Dosage: 125 MG, 1X/DAY
     Route: 048
     Dates: start: 20200714
  4. PALBOCICLIB [Suspect]
     Active Substance: PALBOCICLIB
     Dosage: 125 MG, CYCLIC (ONCE DAILY, 21 DAYS ON, 7 DAYS OFF)
     Route: 048
     Dates: start: 20190814
  5. FULVESTRANT [Concomitant]
     Active Substance: FULVESTRANT
     Dosage: UNK
     Dates: start: 20190814
  6. FULVESTRANT [Concomitant]
     Active Substance: FULVESTRANT
     Dosage: 500 MG (250MG DEEP IM IN EACH BUTTOCK)
     Route: 030
     Dates: start: 20200912, end: 20201012
  7. FULVESTRANT [Concomitant]
     Active Substance: FULVESTRANT
     Dosage: 500 MG (250MG DEEP IM IN EACH BUTTOCK)
     Route: 030
     Dates: start: 20210212
  8. FULVESTRANT [Concomitant]
     Active Substance: FULVESTRANT
     Dosage: 500 MG (250MG DEEP IM IN EACH BUTTOCK)
     Route: 030
     Dates: start: 20210312
  9. FULVESTRANT [Concomitant]
     Active Substance: FULVESTRANT
     Dosage: UNK
     Dates: end: 202110
  10. FULVESTRANT [Concomitant]
     Active Substance: FULVESTRANT
     Dosage: UNK
     Dates: start: 202201
  11. ESENTRA [Concomitant]
     Dosage: 120 MG, UNK
     Route: 058
     Dates: start: 20200912, end: 20201012
  12. PAN [Concomitant]
     Dosage: 40 MG, 1X/DAY (EMPTY STOMACH)
  13. LIVOGEN [FERROUS FUMARATE;FOLIC ACID] [Concomitant]
     Dosage: 2-1, 1X/DAY
  14. SACCARINUM PLUS [Concomitant]
     Dosage: 5 ML, 2X/DAY
  15. FOLIUM [Concomitant]
     Dosage: 5 MG, 1X/DAY
  16. ZOLEDRONIC ACID [Concomitant]
     Active Substance: ZOLEDRONIC ACID
     Dosage: 4 MG IN 100ML NORMAL SALINE
     Dates: start: 20210212
  17. ZOLEDRONIC ACID [Concomitant]
     Active Substance: ZOLEDRONIC ACID
     Dosage: 4 MG IN 100ML NORMAL SALINE
     Dates: start: 20210312
  18. ZOLEDRONIC ACID [Concomitant]
     Active Substance: ZOLEDRONIC ACID
     Dosage: 4 MG IN 100ML NORMAL SALINE
     Route: 042
     Dates: start: 20220418
  19. LETROZOLE [Concomitant]
     Active Substance: LETROZOLE
     Dosage: 2.5 MG, 1X/DAY

REACTIONS (8)
  - Cataract [Unknown]
  - Platelet count increased [Recovering/Resolving]
  - Lymphocyte count decreased [Recovering/Resolving]
  - Neutrophil count decreased [Recovering/Resolving]
  - Pyrexia [Recovered/Resolved]
  - Off label use [Unknown]
  - Neutrophil count abnormal [Unknown]
  - Weight increased [Unknown]
